FAERS Safety Report 7404833-9 (Version None)
Quarter: 2011Q2

REPORT INFORMATION
  Report Type: 
  Country: None (occurrence: None)
  Receive Date: 20110411
  Receipt Date: 20110328
  Transmission Date: 20111010
  Serious: Yes (Hospitalization, Other)
  Sender: FDA-Public Use
  Company Number: US-JNJFOC-20090403812

PATIENT
  Sex: Female
  Weight: 70.31 kg

DRUGS (19)
  1. DURAGESIC [Suspect]
     Route: 062
  2. SYNTHROID [Concomitant]
     Indication: HYPOTHYROIDISM
     Route: 048
  3. DURAGESIC [Suspect]
     Route: 062
  4. DURAGESIC [Suspect]
     Route: 062
  5. DURAGESIC [Suspect]
     Indication: RADICULAR PAIN
     Route: 062
  6. WELLBUTRIN [Concomitant]
     Route: 048
  7. PRISTIQ [Concomitant]
     Indication: DEPRESSION
     Route: 048
  8. DURAGESIC [Suspect]
     Route: 062
  9. WELLBUTRIN [Concomitant]
     Indication: DEPRESSION
     Route: 048
  10. VICODIN [Concomitant]
     Indication: BREAKTHROUGH PAIN
     Route: 048
  11. UNSPECIFIED ANTIDEPRESSANTS [Concomitant]
     Indication: DEPRESSION
     Route: 048
  12. NEURONTIN [Concomitant]
     Indication: MUSCLE SPASMS
     Route: 048
  13. FENTANYL-100 [Suspect]
     Indication: PAIN
     Route: 062
  14. DYAZIDE [Concomitant]
     Indication: FLUID RETENTION
     Route: 048
  15. DURAGESIC [Suspect]
     Indication: PAIN
     Route: 062
  16. DURAGESIC [Suspect]
     Indication: BACK PAIN
     Route: 062
  17. DURAGESIC [Suspect]
     Route: 062
  18. FENTANYL-100 [Suspect]
     Indication: PAIN
     Route: 062
  19. DURAGESIC [Suspect]
     Route: 062

REACTIONS (15)
  - CONFUSIONAL STATE [None]
  - WITHDRAWAL SYNDROME [None]
  - OVERDOSE [None]
  - BLOOD CHOLESTEROL INCREASED [None]
  - DYSKINESIA [None]
  - DIZZINESS [None]
  - VOMITING [None]
  - NERVOUS SYSTEM DISORDER [None]
  - NAUSEA [None]
  - HEAD INJURY [None]
  - BONE PAIN [None]
  - HYPOTHYROIDISM [None]
  - LOSS OF CONSCIOUSNESS [None]
  - CONVULSION [None]
  - DRUG INEFFECTIVE [None]
